FAERS Safety Report 8927943 (Version 1)
Quarter: 2012Q4

REPORT INFORMATION
  Report Type: 
  Country: US (occurrence: None)
  Receive Date: 20121126
  Receipt Date: 20121126
  Transmission Date: 20130627
  Serious: Yes (Other)
  Sender: FDA-Public Use
  Company Number: None

PATIENT
  Age: 30 Year
  Sex: Male
  Weight: 129.28 kg

DRUGS (1)
  1. CREST-PRO-HEALTH NIGHT TOOTHPASTE, CLEAN NIGHT MINT FLAVOR (SODIUM POLYPHOSPHATE 13%, STANNOUS FLUORIDE 0.454%, ZINC LACTATE DIHYDRATE 2.5 %) PASTE, 1 APPLIC [Suspect]
     Dosage: used twice 11/23 Dental
     Dates: start: 20121123, end: 20121123

REACTIONS (2)
  - Pain [None]
  - Gingival pain [None]
